FAERS Safety Report 4518272-1 (Version None)
Quarter: 2004Q4

REPORT INFORMATION
  Report Type: 
  Country: None (occurrence: None)
  Receive Date: 20041130
  Receipt Date: 20041118
  Transmission Date: 20050328
  Serious: Yes (Other)
  Sender: FDA-Public Use
  Company Number: K200401781

PATIENT
  Age: 49 Year
  Sex: Female
  Weight: 117.9 kg

DRUGS (1)
  1. LEVOXYL [Suspect]
     Indication: HYPOTHYROIDISM
     Dosage: 50 MCG, QD, ORAL
     Route: 048
     Dates: start: 20020101, end: 20040901

REACTIONS (6)
  - CHOKING [None]
  - DYSPHAGIA [None]
  - ORAL DISCOMFORT [None]
  - PHARMACEUTICAL PRODUCT COMPLAINT [None]
  - RETCHING [None]
  - SENSATION OF FOREIGN BODY [None]
